FAERS Safety Report 16952078 (Version 1)
Quarter: 2019Q4

REPORT INFORMATION
  Report Type: Spontaneous
  Country: US (occurrence: US)
  Receive Date: 20191023
  Receipt Date: 20191023
  Transmission Date: 20200122
  Serious: No
  Sender: FDA-Public Use
  Company Number: NVSC2019US012512

PATIENT
  Sex: Female

DRUGS (2)
  1. HYCAMTIN [Suspect]
     Active Substance: TOPOTECAN HYDROCHLORIDE
     Indication: LUNG NEOPLASM MALIGNANT
     Dosage: 4.5 MG, QD (1MGX4 +0.25MGX2)
     Route: 048
     Dates: start: 20190716
  2. HYCAMTIN [Suspect]
     Active Substance: TOPOTECAN HYDROCHLORIDE
     Indication: HEPATIC CANCER
     Dosage: 4.5 MG, QD (1MGX4 +0.25MGX2)
     Route: 048
     Dates: start: 20190726, end: 201910

REACTIONS (1)
  - Drug ineffective [Unknown]
